FAERS Safety Report 8028649 (Version 3)
Quarter: 2014Q2

REPORT INFORMATION
  Report Type: Spontaneous
  Country: US (occurrence: US)
  Receive Date: 20110711
  Receipt Date: 20140605
  Transmission Date: 20141212
  Serious: Yes (Other)
  Sender: FDA-Public Use
  Company Number: US-ROCHE-788211

PATIENT
  Age: 42 Year
  Sex: Female
  Weight: 58.57 kg

DRUGS (2)
  1. ACCUTANE [Suspect]
     Indication: ACNE
     Route: 065
     Dates: start: 199811, end: 2000
  2. ACCUTANE [Suspect]
     Route: 065

REACTIONS (7)
  - Inflammatory bowel disease [Unknown]
  - Colitis ulcerative [Unknown]
  - Depression [Not Recovered/Not Resolved]
  - Stress [Not Recovered/Not Resolved]
  - Injury [Unknown]
  - Large intestine polyp [Unknown]
  - Irritable bowel syndrome [Unknown]
